FAERS Safety Report 8168732-X (Version None)
Quarter: 2012Q1

REPORT INFORMATION
  Report Type: 
  Country: None (occurrence: None)
  Receive Date: 20120103
  Receipt Date: 20111114
  Transmission Date: 20120608
  Serious: No
  Sender: FDA-Public Use
  Company Number: AE-2011-003464

PATIENT
  Age: 58 Year
  Sex: Female
  Weight: 87.5442 kg

DRUGS (7)
  1. HYDROCHLOROTHIAZIDE [Concomitant]
  2. METAMUCIL (METAMUCIL ^PROCTER + GAMBLE^) [Concomitant]
  3. INCIVEK [Suspect]
     Dosage: 2250 MG (750 MG,1 IN 8 HR),ORAL
     Route: 048
     Dates: start: 20111112
  4. MULTIVITAMIN (MULTIIVIT) [Concomitant]
  5. PEGASYS [Concomitant]
  6. ALENDRONATE SODIUM [Concomitant]
  7. COPEGUS [Concomitant]

REACTIONS (6)
  - CHILLS [None]
  - RECTAL HAEMORRHAGE [None]
  - ANORECTAL DISCOMFORT [None]
  - PAIN [None]
  - FATIGUE [None]
  - DIARRHOEA [None]
